FAERS Safety Report 7788828-1 (Version None)
Quarter: 2011Q3

REPORT INFORMATION
  Report Type: 
  Country: None (occurrence: None)
  Receive Date: 20110930
  Receipt Date: 20110927
  Transmission Date: 20111222
  Serious: Yes (Other)
  Sender: FDA-Public Use
  Company Number: US-PFIZER INC-2011230911

PATIENT
  Age: 52 Year
  Sex: Female
  Weight: 78.005 kg

DRUGS (4)
  1. SYNTHROID [Concomitant]
     Indication: THYROID DISORDER
     Dosage: 150MG TO 175MG DAILY
     Route: 048
  2. METFORMIN HCL [Suspect]
     Indication: DIABETES MELLITUS
     Dosage: 500 MG, UNK
  3. TOPAMAX [Suspect]
     Indication: CONVULSION
     Dosage: 400 MG, 4X/DAY
  4. DILANTIN-125 [Suspect]
     Indication: CONVULSION
     Dosage: 400 MG FOUR DAYS IN A WEEK AND 300 MG THREE DAYS IN A WEEK

REACTIONS (8)
  - COORDINATION ABNORMAL [None]
  - TREMOR [None]
  - OSTEOPOROSIS [None]
  - BLOOD CREATININE INCREASED [None]
  - OSTEOPENIA [None]
  - ANTICONVULSANT DRUG LEVEL DECREASED [None]
  - ARTHRITIS [None]
  - BLOOD GLUCOSE INCREASED [None]
